FAERS Safety Report 20515959 (Version 2)
Quarter: 2022Q1

REPORT INFORMATION
  Report Type: Spontaneous
  Country: US (occurrence: US)
  Receive Date: 20220225
  Receipt Date: 20220311
  Transmission Date: 20220424
  Serious: Yes (Life-Threatening, Hospitalization, Other)
  Sender: FDA-Public Use
  Company Number: US-MLMSERVICE-20220208-3363466-1

PATIENT
  Age: 19 Year
  Sex: Male

DRUGS (2)
  1. SULFAMETHOXAZOLE\TRIMETHOPRIM [Suspect]
     Active Substance: SULFAMETHOXAZOLE\TRIMETHOPRIM
     Indication: Acne
     Dosage: UNK
     Route: 065
  2. MONTELUKAST [Concomitant]
     Active Substance: MONTELUKAST SODIUM
     Indication: Hypersensitivity
     Dosage: UNK
     Route: 065

REACTIONS (8)
  - Pulmonary toxicity [Recovering/Resolving]
  - Pneumothorax [Recovering/Resolving]
  - Subcutaneous emphysema [Recovering/Resolving]
  - Fibrosis [Recovering/Resolving]
  - Respiratory failure [Recovering/Resolving]
  - Pneumomediastinum [Recovering/Resolving]
  - Diffuse alveolar damage [Recovering/Resolving]
  - Acute respiratory distress syndrome [Recovering/Resolving]
